FAERS Safety Report 10128136 (Version 1)
Quarter: 2014Q2

REPORT INFORMATION
  Report Type: Spontaneous
  Country: US (occurrence: US)
  Receive Date: 20140428
  Receipt Date: 20140428
  Transmission Date: 20141212
  Serious: Yes (Hospitalization)
  Sender: FDA-Public Use
  Company Number: US-BIOGENIDEC-2014BI036471

PATIENT
  Age: 45 Year
  Sex: Female

DRUGS (10)
  1. TECFIDERA [Suspect]
     Indication: MULTIPLE SCLEROSIS
     Route: 048
     Dates: start: 201310, end: 20140411
  2. BACTRIM DS [Concomitant]
  3. CELEXA [Concomitant]
  4. CLONAZEPAM [Concomitant]
  5. FERREX [Concomitant]
  6. FLEXERIL [Concomitant]
  7. NAPROXEN [Concomitant]
  8. PRAVACHOL [Concomitant]
  9. PROTONIX [Concomitant]
  10. TRAMADOL HCL [Concomitant]

REACTIONS (7)
  - Biliary dilatation [Unknown]
  - Red blood cell count decreased [Unknown]
  - White blood cell count decreased [Unknown]
  - Abdominal pain [Unknown]
  - Fatigue [Unknown]
  - Dizziness [Unknown]
  - Palpitations [Unknown]
